FAERS Safety Report 5460627-5 (Version None)
Quarter: 2007Q3

REPORT INFORMATION
  Report Type: 
  Country: None (occurrence: None)
  Receive Date: 20070919
  Receipt Date: 20070910
  Transmission Date: 20080115
  Serious: Yes (Other)
  Sender: FDA-Public Use
  Company Number: CA-PFIZER INC-2007076533

PATIENT
  Sex: Male

DRUGS (7)
  1. LIPITOR [Suspect]
     Route: 048
  2. METFORMIN HCL [Concomitant]
  3. RAMIPRIL [Concomitant]
  4. VERAPAMIL [Concomitant]
  5. METOPROLOL SUCCINATE [Concomitant]
  6. VITAMINS [Concomitant]
  7. INSULIN [Concomitant]

REACTIONS (2)
  - ILL-DEFINED DISORDER [None]
  - PAIN IN EXTREMITY [None]
